FAERS Safety Report 7382410-6 (Version None)
Quarter: 2011Q1

REPORT INFORMATION
  Report Type: 
  Country: None (occurrence: None)
  Receive Date: 20110329
  Receipt Date: 20110309
  Transmission Date: 20110831
  Serious: Yes (Death, Other)
  Sender: FDA-Public Use
  Company Number: US-BAYER-200940394NA

PATIENT
  Sex: Male
  Weight: 128 kg

DRUGS (32)
  1. ANTIHEMOPHILIC FACTOR (HUMAN) [Concomitant]
     Dosage: 12,000 UNITS
  2. BENTYL [Concomitant]
     Dosage: 10 MG, TID
     Route: 048
  3. INSULIN [Concomitant]
     Route: 058
  4. CORDARONE [Concomitant]
     Dosage: UNK
     Route: 042
     Dates: start: 20050117
  5. PLATELETS [Concomitant]
     Dosage: 36 UNITS
     Dates: start: 20050117
  6. PLASMA [Concomitant]
     Dosage: 12 UNITS
     Dates: start: 20050117
  7. CRYOPRECIPITATES [Concomitant]
     Dosage: 30 UNITS
  8. LIPITOR [Concomitant]
     Dosage: 20 MG, QD
     Route: 048
  9. SOLU-MEDROL [Concomitant]
     Dosage: 500 MG, UNK
     Route: 042
     Dates: start: 20050117
  10. TRASYLOL [Suspect]
     Indication: HEART TRANSPLANT
  11. RED BLOOD CELLS [Concomitant]
     Dosage: 14 UNITS
     Dates: start: 20050117
  12. LEVOTHYROXINE SODIUM [Concomitant]
     Dosage: 125 MCG/24HR, UNK
     Route: 048
  13. LASIX [Concomitant]
     Dosage: 20 MG, UNK
     Route: 042
     Dates: start: 20050117
  14. INSULIN [Concomitant]
     Dosage: UNK
     Route: 042
     Dates: start: 20050117
  15. EPINEPHRINE [Concomitant]
     Dosage: UNK
     Route: 042
     Dates: start: 20050117
  16. TRASYLOL [Suspect]
     Indication: STERNOTOMY
     Dosage: 200 ML, UNK
     Route: 042
     Dates: start: 20050117, end: 20050117
  17. TRASYLOL [Suspect]
     Indication: UNEVALUABLE EVENT
  18. PEPCID [Concomitant]
     Dosage: 20 MG, QD
     Route: 048
  19. PROZAC [Concomitant]
     Dosage: 20 MG, QD
     Route: 048
  20. VANCOMYCIN [Concomitant]
     Dosage: 1 GM
     Route: 042
     Dates: start: 20050117
  21. NIFEREX [Concomitant]
     Dosage: 50 MG, BID
     Route: 048
  22. PREDNISONE [Concomitant]
     Dosage: 15 MG, QD
     Route: 048
  23. ACETYLSALICYLIC ACID SRT [Concomitant]
  24. VERSED [Concomitant]
     Dosage: 3 MG, UNK
     Route: 042
     Dates: start: 20050117
  25. MANNITOL [Concomitant]
     Dosage: UNK
     Route: 042
     Dates: start: 20050117
  26. PROTAMINE SULFATE [Concomitant]
     Dosage: UNK
     Route: 042
     Dates: start: 20050117
  27. DOBUTAMINE [Concomitant]
     Dosage: DRIP
     Route: 042
     Dates: start: 20050117
  28. RAMIPRIL [Concomitant]
     Dosage: 12.5 MG, UNK
     Route: 048
  29. LASIX [Concomitant]
     Dosage: 40 MG, UNK
     Route: 048
  30. NEO-SYNEPHRINOL [Concomitant]
     Dosage: UNK
     Route: 042
     Dates: start: 20050117
  31. HEPARIN SODIUM [Concomitant]
     Dosage: 5000 U, UNK
     Route: 042
     Dates: start: 20050117
  32. GENTAMICIN [Concomitant]
     Dosage: 100 MG, UNK
     Route: 042
     Dates: start: 20050117

REACTIONS (18)
  - DEPRESSION [None]
  - NERVOUSNESS [None]
  - MULTI-ORGAN FAILURE [None]
  - RENAL DISORDER [None]
  - EMOTIONAL DISTRESS [None]
  - STRESS [None]
  - ANXIETY [None]
  - RENAL INJURY [None]
  - FEAR [None]
  - ANHEDONIA [None]
  - INJURY [None]
  - FEAR OF DEATH [None]
  - RENAL FAILURE [None]
  - CEREBROVASCULAR ACCIDENT [None]
  - DEATH [None]
  - RENAL IMPAIRMENT [None]
  - UNEVALUABLE EVENT [None]
  - PAIN [None]
